FAERS Safety Report 12140021 (Version 5)
Quarter: 2019Q3

REPORT INFORMATION
  Report Type: Spontaneous
  Country: NO (occurrence: NO)
  Receive Date: 20160303
  Receipt Date: 20190722
  Transmission Date: 20191004
  Serious: Yes (Life-Threatening, Hospitalization, Other)
  Sender: FDA-Public Use
  Company Number: NO-MYLANLABS-2016M1007622

PATIENT
  Age: 63 Year
  Sex: Female

DRUGS (11)
  1. MICARDIS PLUS [Interacting]
     Active Substance: HYDROCHLOROTHIAZIDE\TELMISARTAN
     Indication: PRODUCT USED FOR UNKNOWN INDICATION
     Dosage: 1 DOSAGE FORM, QD, DAILY DOSE: 12.5/80 MG
     Route: 065
  2. MAREVAN [Suspect]
     Active Substance: WARFARIN SODIUM
     Indication: PRODUCT USED FOR UNKNOWN INDICATION
     Dosage: 2.5 MILLIGRAM (2.5 MG AFTER LIST )
  3. ATENOLOL. [Suspect]
     Active Substance: ATENOLOL
     Indication: PRODUCT USED FOR UNKNOWN INDICATION
     Dosage: 50 MG, QD (50 MG, 1X/DAY)
     Route: 065
  4. FELODIPINE. [Interacting]
     Active Substance: FELODIPINE
     Indication: PRODUCT USED FOR UNKNOWN INDICATION
     Dosage: 10 MG, QD
     Route: 048
  5. INSULIN PORK [Interacting]
     Active Substance: INSULIN PORK\INSULIN PURIFIED PORK
     Indication: PRODUCT USED FOR UNKNOWN INDICATION
     Dosage: UNK (18 + 16 IU)
  6. SIMVASTATIN. [Concomitant]
     Active Substance: SIMVASTATIN
     Indication: PRODUCT USED FOR UNKNOWN INDICATION
     Dosage: 20 MILLIGRAM, QD
  7. ALBYL-E [Suspect]
     Active Substance: ASPIRIN\MAGNESIUM OXIDE
     Indication: PRODUCT USED FOR UNKNOWN INDICATION
     Dosage: 75 MILLIGRAM, QD
  8. ERY-MAX [Interacting]
     Active Substance: ERYTHROMYCIN
     Indication: RESPIRATORY TRACT INFECTION
     Dosage: 500 MG, TID (500 MG, 3X/DAY)
     Route: 065
  9. GLUCOPHAGE [Interacting]
     Active Substance: METFORMIN HYDROCHLORIDE
     Indication: PRODUCT USED FOR UNKNOWN INDICATION
     Dosage: 1000 MG, BID (1000 MG, 2X/DAY)
     Route: 065
  10. NEURONTIN [Concomitant]
     Active Substance: GABAPENTIN
     Indication: PRODUCT USED FOR UNKNOWN INDICATION
     Dosage: 600 MG, TID (600 MG (300 MG 2), 3X/DAY)
  11. COUMADIN [Concomitant]
     Active Substance: WARFARIN SODIUM
     Dosage: 2.5 MG, UNK (2.5 MG AFTER LIST)

REACTIONS (9)
  - Drug interaction [Recovering/Resolving]
  - Lactic acidosis [Recovering/Resolving]
  - Metabolic acidosis [Recovering/Resolving]
  - Hypothermia [Recovering/Resolving]
  - Hypoglycaemia [Recovering/Resolving]
  - Hyperkalaemia [Not Recovered/Not Resolved]
  - Sinus bradycardia [Recovering/Resolving]
  - Hypotension [Recovering/Resolving]
  - Acute kidney injury [Recovering/Resolving]
